FAERS Safety Report 5829373-X (Version None)
Quarter: 2008Q3

REPORT INFORMATION
  Report Type: 
  Country: None (occurrence: None)
  Receive Date: 20080731
  Receipt Date: 20080721
  Transmission Date: 20090109
  Serious: Yes (Other)
  Sender: FDA-Public Use
  Company Number: US-BAXTER-2008BH008001

PATIENT
  Age: 62 Year
  Sex: Female

DRUGS (9)
  1. DEXAMETHASONE [Suspect]
     Indication: ACUTE LYMPHOCYTIC LEUKAEMIA
     Dosage: DOSE UNIT:UNKNOWN
     Route: 037
     Dates: start: 20060301, end: 20060901
  2. CYCLOPHOSPHAMIDE [Suspect]
     Indication: ACUTE LYMPHOCYTIC LEUKAEMIA
     Dosage: DOSE UNIT:UNKNOWN
     Route: 037
     Dates: start: 20060301, end: 20060901
  3. DOXORUBICIN HCL [Suspect]
     Indication: ACUTE LYMPHOCYTIC LEUKAEMIA
     Dosage: DOSE UNIT:UNKNOWN
     Route: 037
     Dates: start: 20060301, end: 20060901
  4. VINCRISTINE SULFATE [Suspect]
     Indication: ACUTE LYMPHOCYTIC LEUKAEMIA
     Dosage: DOSE UNIT:UNKNOWN
     Route: 037
     Dates: start: 20060301, end: 20060901
  5. VINCRISTINE SULFATE [Suspect]
     Dosage: DOSE UNIT:UNKNOWN
     Route: 037
     Dates: start: 20060901
  6. IMATINIB MESILATE [Suspect]
     Indication: ACUTE LYMPHOCYTIC LEUKAEMIA
     Route: 048
     Dates: start: 20060301, end: 20060901
  7. IMATINIB MESILATE [Suspect]
     Route: 048
     Dates: start: 20060901
  8. IMATINIB MESILATE [Suspect]
     Route: 048
     Dates: start: 20070301
  9. PREDNISONE [Suspect]
     Indication: ACUTE LYMPHOCYTIC LEUKAEMIA
     Dosage: DOSE UNIT:UNKNOWN
     Route: 037
     Dates: start: 20060901

REACTIONS (2)
  - CHRONIC MYELOMONOCYTIC LEUKAEMIA [None]
  - MYELODYSPLASTIC SYNDROME [None]
